FAERS Safety Report 17911692 (Version 4)
Quarter: 2020Q3

REPORT INFORMATION
  Report Type: Spontaneous
  Country: US (occurrence: US)
  Receive Date: 20200618
  Receipt Date: 20200909
  Transmission Date: 20201103
  Serious: No
  Sender: FDA-Public Use
  Company Number: US-PFIZER INC-2020236326

PATIENT
  Age: 76 Year
  Sex: Male
  Weight: 101.15 kg

DRUGS (10)
  1. TOVIAZ [Suspect]
     Active Substance: FESOTERODINE FUMARATE
     Indication: BLADDER DISORDER
     Dosage: 8 MG, 1X/DAY (ONCE DAILY BY MOUTH)
     Route: 048
     Dates: start: 202006
  2. METFORMIN [Concomitant]
     Active Substance: METFORMIN HYDROCHLORIDE
     Indication: DIABETES MELLITUS
     Dosage: 500 MG, 3X/DAY ( TAKE ONE THREE TIMES DAILY BY MOUTH)
     Route: 048
  3. FAMOTIDINE. [Concomitant]
     Active Substance: FAMOTIDINE
     Indication: GASTROOESOPHAGEAL REFLUX DISEASE
     Dosage: 40 MG, AS NEEDED (TAKE AS NEEDED BY MOUTH)
     Route: 048
  4. OXYCONTIN [Suspect]
     Active Substance: OXYCODONE HYDROCHLORIDE
     Dosage: UNK
  5. VOLTAREN [Concomitant]
     Active Substance: DICLOFENAC SODIUM
     Indication: ARTHRITIS
     Dosage: 2 G (1%/2GM; GEL APPLY TO SKIN)
     Route: 061
  6. SIMVASTATIN. [Concomitant]
     Active Substance: SIMVASTATIN
     Indication: BLOOD CHOLESTEROL ABNORMAL
     Dosage: 10 MG, 1X/DAY (TAKE ONCE AT BEDTIME BY MOUTH)
     Route: 048
  7. METOPROLOL TARTRATE. [Concomitant]
     Active Substance: METOPROLOL TARTRATE
     Indication: HEART RATE INCREASED
     Dosage: 50 MG, 2X/DAY (TAKE ONE TWICE DAILY BY MOUTH)
     Route: 048
  8. LEVOCETIRIZINE HYDROCHLORIDE [Concomitant]
     Active Substance: LEVOCETIRIZINE HYDROCHLORIDE
     Indication: HYPERSENSITIVITY
     Dosage: 5 MG, 1X/DAY (TAKE ONCE DAILY BY MOUTH)
     Route: 048
  9. OMEPRAZOLE. [Concomitant]
     Active Substance: OMEPRAZOLE
     Indication: GASTROOESOPHAGEAL REFLUX DISEASE
     Dosage: 20 MG, DAILY (TAKE ONE DAILY BY MOUTH)
     Route: 048
  10. GLIMEPIRIDE. [Concomitant]
     Active Substance: GLIMEPIRIDE
     Indication: DIABETES MELLITUS
     Dosage: 4 MG, 2X/DAY (TAKE ONE TWICE DAILY BY MOUTH)
     Route: 048

REACTIONS (6)
  - Balance disorder [Unknown]
  - Dry mouth [Unknown]
  - Myalgia [Recovered/Resolved]
  - Gait disturbance [Unknown]
  - Dry eye [Unknown]
  - Pain [Unknown]
